FAERS Safety Report 9632109 (Version 1)
Quarter: 2013Q4

REPORT INFORMATION
  Report Type: Spontaneous
  Country: ZA (occurrence: ZA)
  Receive Date: 20131018
  Receipt Date: 20131018
  Transmission Date: 20140711
  Serious: Yes (Other)
  Sender: FDA-Public Use
  Company Number: ZA-BAYER-2013-125978

PATIENT
  Sex: Female

DRUGS (3)
  1. ANGELIQ [Suspect]
     Indication: HORMONE REPLACEMENT THERAPY
     Dosage: 1 UNK, DAILY
     Route: 048
     Dates: start: 201309
  2. TEGRETOL [Concomitant]
     Indication: EPILEPSY
     Dosage: UNK
  3. MIRENA [Suspect]
     Dosage: 20 MCG/24HR, CONT
     Route: 015

REACTIONS (1)
  - Epilepsy [None]
